FAERS Safety Report 9220721 (Version 1)
Quarter: 2013Q2

REPORT INFORMATION
  Report Type: Spontaneous
  Country: US (occurrence: US)
  Receive Date: 20130409
  Receipt Date: 20130409
  Transmission Date: 20140414
  Serious: Yes (Hospitalization)
  Sender: FDA-Public Use
  Company Number: US-PFIZER INC-2013108209

PATIENT
  Age: 53 Year
  Sex: Female
  Weight: 63.5 kg

DRUGS (2)
  1. ESTRING [Suspect]
     Indication: VAGINAL ATRESIA
     Dosage: UNK
     Route: 067
     Dates: start: 201212, end: 2013
  2. HYDROXYCHLOROQUINE [Concomitant]
     Dosage: UNK

REACTIONS (10)
  - Vaginal haemorrhage [Unknown]
  - Anaemia [Recovered/Resolved]
  - Drug intolerance [Recovered/Resolved]
  - Vaginal discharge [Unknown]
  - Uterine disorder [Recovered/Resolved]
  - Mania [Unknown]
  - Fatigue [Unknown]
  - Asthenia [Unknown]
  - Lethargy [Unknown]
  - Hypersensitivity [Unknown]
